FAERS Safety Report 10409622 (Version 1)
Quarter: 2014Q3

REPORT INFORMATION
  Report Type: Spontaneous
  Country: US (occurrence: None)
  Receive Date: 20140825
  Receipt Date: 20140825
  Transmission Date: 20150326
  Serious: Yes (Hospitalization)
  Sender: FDA-Public Use
  Company Number: None

PATIENT
  Age: 65 Year
  Sex: Male

DRUGS (1)
  1. ETOPOSIDE. [Suspect]
     Active Substance: ETOPOSIDE
     Indication: PROSTATE CANCER
     Dosage: 200MG 2CAP.TWICE DAILY ORAL
     Route: 048
     Dates: start: 20140724

REACTIONS (4)
  - Blood pressure decreased [None]
  - Asthenia [None]
  - White blood cell count decreased [None]
  - Red blood cell count decreased [None]

NARRATIVE: CASE EVENT DATE: 20140822
